FAERS Safety Report 24210192 (Version 1)
Quarter: 2024Q3

REPORT INFORMATION
  Report Type: Report from Study
  Country: RS (occurrence: RS)
  Receive Date: 20240814
  Receipt Date: 20240814
  Transmission Date: 20241016
  Serious: Yes (Death)
  Sender: ROCHE
  Company Number: RS-ROCHE-10000052102

PATIENT

DRUGS (3)
  1. RITUXIMAB [Suspect]
     Active Substance: RITUXIMAB
     Indication: Hairy cell leukaemia
     Route: 065
  2. VEMURAFENIB [Suspect]
     Active Substance: VEMURAFENIB
     Indication: Hairy cell leukaemia
     Route: 065
  3. CLADRIBINE [Concomitant]
     Active Substance: CLADRIBINE
     Route: 058

REACTIONS (10)
  - Viral infection [Unknown]
  - Bacterial sepsis [Fatal]
  - Pneumonia influenzal [Fatal]
  - COVID-19 pneumonia [Fatal]
  - Hepatitis B [Unknown]
  - Herpes zoster [Unknown]
  - Skin infection [Unknown]
  - Soft tissue infection [Unknown]
  - Cytomegalovirus infection [Unknown]
  - Herpes simplex [Unknown]
